FAERS Safety Report 8419730-X (Version None)
Quarter: 2012Q2

REPORT INFORMATION
  Report Type: 
  Country: None (occurrence: None)
  Receive Date: 20120607
  Receipt Date: 20120601
  Transmission Date: 20120825
  Serious: Yes (Hospitalization, Other)
  Sender: FDA-Public Use
  Company Number: US-ACTELION-A-NJ2012-64180

PATIENT

DRUGS (10)
  1. ENBREL [Concomitant]
  2. DILANTIN [Concomitant]
  3. POTASSIUM CHLORIDE [Concomitant]
  4. PROAIR HFA [Concomitant]
  5. BACTRIM [Concomitant]
  6. CELEBREX [Concomitant]
  7. LASIX [Concomitant]
  8. TRACLEER [Suspect]
     Indication: PULMONARY ARTERIAL HYPERTENSION
     Dosage: UNK
     Route: 048
     Dates: start: 20080918
  9. TRAMADOL HCL [Concomitant]
  10. CARDIZEM [Concomitant]

REACTIONS (4)
  - THYROIDECTOMY [None]
  - PNEUMONIA [None]
  - COUGH [None]
  - DYSPNOEA [None]
